FAERS Safety Report 6725359-1 (Version None)
Quarter: 2010Q2

REPORT INFORMATION
  Report Type: 
  Country: None (occurrence: None)
  Receive Date: 20100514
  Receipt Date: 20100506
  Transmission Date: 20101027
  Serious: Yes (Other)
  Sender: FDA-Public Use
  Company Number: FI-JNJFOC-20100501475

PATIENT
  Sex: Male

DRUGS (4)
  1. STELARA [Suspect]
     Indication: PSORIASIS
     Route: 058
  2. KETIPINOR [Concomitant]
     Route: 048
  3. NORVASC [Concomitant]
     Route: 048
  4. XYZAL [Concomitant]
     Route: 048

REACTIONS (2)
  - ABSCESS [None]
  - HEADACHE [None]
